FAERS Safety Report 4526648-1 (Version None)
Quarter: 2004Q4

REPORT INFORMATION
  Report Type: 
  Country: None (occurrence: None)
  Receive Date: 20041214
  Receipt Date: 20030407
  Transmission Date: 20050328
  Serious: Yes (Death, Other)
  Sender: FDA-Public Use
  Company Number: GB-GLAXOSMITHKLINE-B0297034A

PATIENT
  Age: 31 Year
  Sex: Female

DRUGS (1)
  1. SEROXAT [Suspect]
     Indication: POSTPARTUM DEPRESSION
     Route: 048

REACTIONS (2)
  - COMPLETED SUICIDE [None]
  - INJURY ASPHYXIATION [None]
